FAERS Safety Report 22202710 (Version 8)
Quarter: 2024Q2

REPORT INFORMATION
  Report Type: Spontaneous
  Country: CA (occurrence: CA)
  Receive Date: 20230412
  Receipt Date: 20240603
  Transmission Date: 20240716
  Serious: Yes (Other)
  Sender: FDA-Public Use
  Company Number: CA-PFIZER INC-202300148398

PATIENT
  Age: 47 Year
  Sex: Female

DRUGS (13)
  1. RUXIENCE [Suspect]
     Active Substance: RITUXIMAB-PVVR
     Indication: Systemic lupus erythematosus
     Dosage: 1000 MG, DAY 1 AND DAY 15
     Route: 042
     Dates: start: 20230323, end: 20230406
  2. RUXIENCE [Suspect]
     Active Substance: RITUXIMAB-PVVR
     Indication: Rheumatoid arthritis
     Dosage: 1000 MG, DAY 1 AND DAY 15
     Route: 042
     Dates: start: 20230406
  3. RUXIENCE [Suspect]
     Active Substance: RITUXIMAB-PVVR
     Dosage: 1000 MG, DAY 1 AND DAY 15
     Route: 042
     Dates: start: 20231031, end: 20231115
  4. RUXIENCE [Suspect]
     Active Substance: RITUXIMAB-PVVR
     Dosage: 1000 MG, DAY 1 AND DAY 15
     Route: 042
     Dates: start: 20231115
  5. NIFEDIPINE [Concomitant]
     Active Substance: NIFEDIPINE
     Dosage: 15 MG, UNKNOWN FREQUENCY
  6. BUSPIRONE [Concomitant]
     Active Substance: BUSPIRONE HYDROCHLORIDE
     Dosage: UNK
  7. CYMBALTA [Concomitant]
     Active Substance: DULOXETINE HYDROCHLORIDE
     Dosage: 60 MG, UNKNOWN FREQUENCY
  8. FOLIC ACID [Concomitant]
     Active Substance: FOLIC ACID
     Dosage: 5 MG, UNKNOWN FREQUENCY
  9. LYRICA [Concomitant]
     Active Substance: PREGABALIN
     Dosage: UNK
  10. METHOTREXATE [Concomitant]
     Active Substance: METHOTREXATE
     Indication: Rheumatoid arthritis
     Dosage: 1 DF, UNKNOWN DOSE AND TREATMENT DATES - DISCONTINUED
     Route: 065
  11. METHOTREXATE [Concomitant]
     Active Substance: METHOTREXATE
     Dosage: 1 DF, UNKNOWN DOSE AND TREATMENT DATES - DISCONTINUED (RETRIAL)
     Route: 065
     Dates: start: 202310
  12. PLAQUENIL [Concomitant]
     Active Substance: HYDROXYCHLOROQUINE SULFATE
     Dosage: 400 MG, 1X/DAY
     Route: 065
     Dates: start: 202401
  13. ZOLOFT [Concomitant]
     Active Substance: SERTRALINE HYDROCHLORIDE
     Dosage: UNK

REACTIONS (16)
  - Oral pruritus [Recovered/Resolved]
  - Throat irritation [Recovered/Resolved]
  - Dysphagia [Recovered/Resolved]
  - Ageusia [Recovered/Resolved]
  - Tongue erythema [Recovered/Resolved]
  - Abdominal discomfort [Recovered/Resolved]
  - Mouth ulceration [Not Recovered/Not Resolved]
  - Antinuclear antibody positive [Unknown]
  - DNA antibody positive [Unknown]
  - Tremor [Unknown]
  - Irritable bowel syndrome [Unknown]
  - Fatigue [Not Recovered/Not Resolved]
  - Condition aggravated [Recovering/Resolving]
  - Tooth abscess [Unknown]
  - Swollen tongue [Recovered/Resolved]
  - Therapeutic product effect incomplete [Unknown]

NARRATIVE: CASE EVENT DATE: 20230101
